FAERS Safety Report 6805023-0 (Version None)
Quarter: 2010Q2

REPORT INFORMATION
  Report Type: 
  Country: None (occurrence: None)
  Receive Date: 20100628
  Receipt Date: 20070802
  Transmission Date: 20101027
  Serious: No
  Sender: FDA-Public Use
  Company Number: US-PFIZER INC-2007065244

PATIENT
  Sex: Female
  Weight: 65.77 kg

DRUGS (4)
  1. GEODON [Suspect]
     Indication: NERVOUSNESS
     Dates: start: 20070701
  2. GEODON [Suspect]
     Indication: ANXIETY
  3. PETIBELLE FILMTABLETTEN [Concomitant]
  4. ANTIBIOTICS [Concomitant]

REACTIONS (2)
  - BREAST TENDERNESS [None]
  - VULVOVAGINAL DISCOMFORT [None]
